FAERS Safety Report 6705040-5 (Version None)
Quarter: 2010Q2

REPORT INFORMATION
  Report Type: 
  Country: None (occurrence: None)
  Receive Date: 20100430
  Receipt Date: 20100419
  Transmission Date: 20101027
  Serious: Yes (Hospitalization)
  Sender: FDA-Public Use
  Company Number: B0648268A

PATIENT
  Sex: Female

DRUGS (3)
  1. ZOVIRAX [Suspect]
     Indication: ENCEPHALITIS HERPES
     Dosage: .5G THREE TIMES PER DAY
     Route: 042
     Dates: start: 20090917, end: 20090923
  2. ROCEPHIN [Suspect]
     Indication: LISTERIOSIS
     Route: 042
     Dates: start: 20090917
  3. AMOXICILLIN SODIUM [Concomitant]
     Indication: LISTERIOSIS
     Route: 042

REACTIONS (5)
  - ANURIA [None]
  - COMA [None]
  - ENCEPHALOPATHY [None]
  - NERVOUS SYSTEM DISORDER [None]
  - RENAL FAILURE ACUTE [None]
